FAERS Safety Report 10080274 (Version 1)
Quarter: 2014Q2

REPORT INFORMATION
  Report Type: Spontaneous
  Country: JP (occurrence: JP)
  Receive Date: 20140415
  Receipt Date: 20140415
  Transmission Date: 20141212
  Serious: Yes (Life-Threatening, Hospitalization)
  Sender: FDA-Public Use
  Company Number: PHHY2014JP042259

PATIENT
  Sex: 0

DRUGS (1)
  1. CEFEPIME SANDOZ [Suspect]

REACTIONS (2)
  - Encephalopathy [Unknown]
  - Acidosis [Unknown]
